FAERS Safety Report 15386632 (Version 2)
Quarter: 2019Q4

REPORT INFORMATION
  Report Type: Spontaneous
  Country: US (occurrence: US)
  Receive Date: 20180914
  Receipt Date: 20191016
  Transmission Date: 20200122
  Serious: Yes (Hospitalization, Other)
  Sender: FDA-Public Use
  Company Number: US-ASTRAZENECA-2018SF15300

PATIENT
  Age: 19017 Day
  Sex: Female

DRUGS (1)
  1. ZOMIG [Suspect]
     Active Substance: ZOLMITRIPTAN
     Indication: MIGRAINE
     Dosage: 5 MG, 1 SPRAY IN NOSTRIL AT ONSET OF MIGRAINE, MAY REPEAT IN 2 HOURS. DO NOT EXCEED 10 MG PER DAY
     Route: 045
     Dates: start: 201711

REACTIONS (3)
  - Migraine [Unknown]
  - Weight increased [Unknown]
  - Therapeutic product effect incomplete [Unknown]

NARRATIVE: CASE EVENT DATE: 20191008
